FAERS Safety Report 7255923-5 (Version None)
Quarter: 2011Q1

REPORT INFORMATION
  Report Type: 
  Country: None (occurrence: None)
  Receive Date: 20110129
  Receipt Date: 20100602
  Transmission Date: 20110831
  Serious: No
  Sender: FDA-Public Use
  Company Number: US-ABBOTT-10P-163-0648519-00

PATIENT
  Age: 61 Year
  Sex: Female

DRUGS (14)
  1. LIPITOR [Concomitant]
     Indication: BLOOD CHOLESTEROL
  2. DIAZEPAM [Concomitant]
     Indication: PRODUCT USED FOR UNKNOWN INDICATION
  3. CALCIUM [Concomitant]
     Indication: PRODUCT USED FOR UNKNOWN INDICATION
  4. HUMIRA [Suspect]
     Indication: RHEUMATOID ARTHRITIS
     Dates: start: 20100531
  5. CELEBREX [Concomitant]
     Indication: RHEUMATOID ARTHRITIS
  6. HYDROCODONE APA [Concomitant]
     Indication: PAIN
     Dosage: 10/500MG AS NEEDED
  7. LUNESTA [Concomitant]
     Indication: INSOMNIA
  8. VIT E [Concomitant]
     Indication: PRODUCT USED FOR UNKNOWN INDICATION
  9. PLAQUENIL [Concomitant]
     Indication: RHEUMATOID ARTHRITIS
  10. CITALOPRAM HYDROBROMIDE [Concomitant]
     Indication: DEPRESSION
  11. MULTI-VITAMINS [Concomitant]
     Indication: PRODUCT USED FOR UNKNOWN INDICATION
  12. FISH OIL [Concomitant]
     Indication: PRODUCT USED FOR UNKNOWN INDICATION
  13. REQUIP [Concomitant]
     Indication: RESTLESS LEGS SYNDROME
     Dosage: AT BEDTIME
  14. HYZAAR [Concomitant]
     Indication: BLOOD PRESSURE
     Dosage: 100/12.5MG DAILY

REACTIONS (7)
  - MALAISE [None]
  - FATIGUE [None]
  - NAUSEA [None]
  - DIARRHOEA [None]
  - ABDOMINAL DISCOMFORT [None]
  - DECREASED APPETITE [None]
  - HEADACHE [None]
